FAERS Safety Report 24781932 (Version 1)
Quarter: 2024Q4

REPORT INFORMATION
  Report Type: Spontaneous
  Country: NP (occurrence: NP)
  Receive Date: 20241227
  Receipt Date: 20241227
  Transmission Date: 20250115
  Serious: Yes (Life-Threatening, Hospitalization)
  Sender: ACCORD
  Company Number: NP-Accord-461324

PATIENT
  Age: 90 Year
  Sex: Female

DRUGS (8)
  1. AMLODIPINE [Suspect]
     Active Substance: AMLODIPINE BESYLATE
     Indication: Hypertension
  2. FUROSEMIDE [Suspect]
     Active Substance: FUROSEMIDE
     Indication: Heart failure with preserved ejection fraction
     Dosage: FUROSEMIDE/SPIRONOLACTONE 20/50 MG ONCE DAILY
  3. SPIRONOLACTONE [Suspect]
     Active Substance: SPIRONOLACTONE
     Indication: Heart failure with preserved ejection fraction
     Dosage: FUROSEMIDE/SPIRONOLACTONE 20/50 MG ONCE DAILY
  4. BISOPROLOL [Suspect]
     Active Substance: BISOPROLOL
     Indication: Heart failure with preserved ejection fraction
  5. TELMISARTAN [Suspect]
     Active Substance: TELMISARTAN
     Indication: Hypertension
  6. ATORVASTATIN [Concomitant]
     Active Substance: ATORVASTATIN
     Indication: Heart failure with preserved ejection fraction
  7. METFORMIN [Concomitant]
     Active Substance: METFORMIN HYDROCHLORIDE
     Indication: Type 2 diabetes mellitus
  8. ASPIRIN [Concomitant]
     Active Substance: ASPIRIN
     Indication: Heart failure with preserved ejection fraction

REACTIONS (3)
  - BRASH syndrome [Recovering/Resolving]
  - Metabolic acidosis [Recovering/Resolving]
  - Pleural effusion [Recovering/Resolving]
